FAERS Safety Report 5404261-1 (Version None)
Quarter: 2007Q3

REPORT INFORMATION
  Report Type: 
  Country: None (occurrence: None)
  Receive Date: 20070802
  Receipt Date: 20070724
  Transmission Date: 20080115
  Serious: Yes (Hospitalization)
  Sender: FDA-Public Use
  Company Number: PHHO2007DE01192

PATIENT
  Age: 47 Year
  Sex: Male

DRUGS (1)
  1. NEORAL [Suspect]
     Indication: LIVER TRANSPLANT
     Dosage: UNK, UNK
     Route: 048
     Dates: end: 20061108

REACTIONS (3)
  - AGITATION [None]
  - CONFUSIONAL STATE [None]
  - PSYCHOTIC DISORDER [None]
